FAERS Safety Report 7199571-4 (Version None)
Quarter: 2010Q4

REPORT INFORMATION
  Report Type: 
  Country: None (occurrence: None)
  Receive Date: 20101228
  Receipt Date: 20101222
  Transmission Date: 20110411
  Serious: Yes (Other)
  Sender: FDA-Public Use
  Company Number: GB-B.I. PHARMACEUTICALS,INC./RIDGEFIELD-2010-UK-01217UK

PATIENT
  Age: 52 Year
  Sex: Male

DRUGS (9)
  1. IPRATROPIUM BROMIDE [Suspect]
     Dosage: 500MCG 4/1 DAYS
     Route: 055
     Dates: start: 20090211, end: 20100908
  2. AZITHROMYCIN [Concomitant]
  3. CARBOCISTEINE [Concomitant]
  4. CO-CODAMOL [Concomitant]
  5. PREDNISOLONE [Concomitant]
  6. SERETIDE [Concomitant]
  7. STERI-NEB SALBUTAMOL [Concomitant]
  8. UNIPHYL [Concomitant]
  9. ZOPICLONE [Concomitant]

REACTIONS (2)
  - ANGLE CLOSURE GLAUCOMA [None]
  - BLINDNESS TRANSIENT [None]
